FAERS Safety Report 11245828 (Version 1)
Quarter: 2015Q3

REPORT INFORMATION
  Report Type: Spontaneous
  Country: US (occurrence: US)
  Receive Date: 20150707
  Receipt Date: 20150707
  Transmission Date: 20151125
  Serious: No
  Sender: FDA-Public Use
  Company Number: US-ASTRAZENECA-2014SE84054

PATIENT
  Age: 27045 Day
  Sex: Male

DRUGS (28)
  1. COLCRYS [Concomitant]
     Active Substance: COLCHICINE
     Route: 048
     Dates: start: 19900101
  2. ONETOUCH ULTRA MINI W/DEVICE KIT [Concomitant]
     Dates: start: 20150108
  3. METFORMIN HCL [Concomitant]
     Active Substance: METFORMIN HYDROCHLORIDE
     Route: 048
     Dates: start: 20130614
  4. METOPROLOL TARTRATE. [Concomitant]
     Active Substance: METOPROLOL TARTRATE
     Route: 048
     Dates: start: 20130812
  5. UREA. [Concomitant]
     Active Substance: UREA
     Dosage: TWICE DAILY
     Route: 065
     Dates: start: 20130404
  6. LISINOPRIL. [Suspect]
     Active Substance: LISINOPRIL
     Indication: PRODUCT USE ISSUE
     Route: 048
  7. ATORVOSTATIN CALCIUM [Concomitant]
     Route: 048
     Dates: start: 19900101
  8. FUROSOMLDE [Concomitant]
     Route: 048
     Dates: start: 19900101
  9. METOPROLOL SUCCINATE. [Concomitant]
     Active Substance: METOPROLOL SUCCINATE
     Route: 048
     Dates: start: 20140821
  10. VITAMIN B12 [Concomitant]
     Active Substance: CYANOCOBALAMIN
     Route: 048
  11. VOLTAREN [Concomitant]
     Active Substance: DICLOFENAC SODIUM
     Route: 065
  12. ONGLYZA [Suspect]
     Active Substance: SAXAGLIPTIN HYDROCHLORIDE
     Dosage: 5 MG 1TABLET IN THE MORNING WITH BREAKFAST
     Route: 048
     Dates: start: 20130816
  13. ALLOPURINOL. [Concomitant]
     Active Substance: ALLOPURINOL
     Route: 048
  14. ASPIRIN. [Concomitant]
     Active Substance: ASPIRIN
     Route: 048
  15. LOVAZA [Concomitant]
     Active Substance: OMEGA-3-ACID ETHYL ESTERS
     Route: 048
     Dates: start: 20130816
  16. TRIAMCINOLONE ACETONIDE. [Concomitant]
     Active Substance: TRIAMCINOLONE ACETONIDE
     Dosage: AS REQUIRED
     Route: 065
     Dates: start: 20141211
  17. VITAMIN D3 [Concomitant]
     Active Substance: CHOLECALCIFEROL
     Route: 048
  18. ALBUTEROL SULFUTE [Concomitant]
     Dosage: (2.5 MG/3ML) 0.083%
     Route: 055
     Dates: start: 20130807
  19. VALACYCLOVIR [Concomitant]
     Active Substance: VALACYCLOVIR HYDROCHLORIDE
     Dosage: TAKE 2 TABLETS EVERY 12 HOURS
     Route: 048
     Dates: start: 20141214
  20. LANCET [Concomitant]
     Dosage: 3 TIMES DAILY
     Dates: start: 20150108
  21. GLLMEPIRLDE [Concomitant]
     Dosage: 2 MG, TAKE I TABLET AT BREAKFAS, AND ONE AND HALF TABLET AT DINNER
     Route: 048
     Dates: start: 19900101
  22. METOPROLOL SUCCINATE. [Concomitant]
     Active Substance: METOPROLOL SUCCINATE
     Route: 048
     Dates: start: 20131024
  23. MULTIVITAMIN [Concomitant]
     Active Substance: VITAMINS
     Route: 048
  24. NIACIN. [Concomitant]
     Active Substance: NIACIN
     Route: 048
  25. ONETOUCH ULTRA BLUE IN VITRO STRIP [Concomitant]
     Dates: start: 20150108
  26. POLYETHYLENE GLYCOL [Concomitant]
     Active Substance: POLYETHYLENE GLYCOLS
     Route: 048
     Dates: start: 20140711
  27. LOSARTAN POTASSIUM. [Concomitant]
     Active Substance: LOSARTAN POTASSIUM
     Route: 048
     Dates: start: 20130816
  28. INDOCIN [Concomitant]
     Active Substance: INDOMETHACIN\INDOMETHACIN SODIUM

REACTIONS (2)
  - Drug hypersensitivity [Unknown]
  - Drug dose omission [Unknown]

NARRATIVE: CASE EVENT DATE: 20141029
